FAERS Safety Report 8816560 (Version 1)
Quarter: 2012Q4

REPORT INFORMATION
  Report Type: Spontaneous
  Country: US (occurrence: None)
  Receive Date: 20121001
  Receipt Date: 20121001
  Transmission Date: 20130627
  Serious: Yes (Life-Threatening)
  Sender: FDA-Public Use
  Company Number: None

PATIENT
  Age: 57 Year
  Sex: Female
  Weight: 65.77 kg

DRUGS (2)
  1. FEMRING [Suspect]
     Indication: HORMONAL IMBALANCE
     Route: 067
     Dates: start: 20120830, end: 20120831
  2. FEMRING [Suspect]
     Indication: HOT FLASHES
     Route: 067
     Dates: start: 20120830, end: 20120831

REACTIONS (2)
  - Gastric dilatation [None]
  - Abdominal pain upper [None]
